FAERS Safety Report 17107194 (Version 10)
Quarter: 2020Q3

REPORT INFORMATION
  Report Type: Report from Study
  Country: US (occurrence: US)
  Receive Date: 20191204
  Receipt Date: 20200929
  Transmission Date: 20201102
  Serious: No
  Sender: FDA-Public Use
  Company Number: NVSC2019US056223

PATIENT
  Sex: Female

DRUGS (2)
  1. COSENTYX [Suspect]
     Active Substance: SECUKINUMAB
     Indication: PSORIASIS
     Dosage: 150 MG, QW
     Route: 058
     Dates: start: 20191115
  2. COSENTYX [Suspect]
     Active Substance: SECUKINUMAB
     Dosage: 300 MG, QMO
     Route: 058

REACTIONS (11)
  - Psoriasis [Unknown]
  - Panic disorder [Unknown]
  - Device malfunction [Unknown]
  - Fatigue [Recovered/Resolved]
  - Food allergy [Unknown]
  - Frequent bowel movements [Unknown]
  - Incorrect dose administered [Unknown]
  - Arthralgia [Unknown]
  - Anxiety [Unknown]
  - Migraine [Unknown]
  - Speech disorder [Unknown]
